FAERS Safety Report 6078405-5 (Version None)
Quarter: 2009Q1

REPORT INFORMATION
  Report Type: 
  Country: None (occurrence: None)
  Receive Date: 20090212
  Receipt Date: 20090205
  Transmission Date: 20090719
  Serious: Yes (Death)
  Sender: FDA-Public Use
  Company Number: US021974

PATIENT
  Age: 45 Year
  Sex: Female

DRUGS (4)
  1. ACTIQ [Suspect]
     Indication: MIGRAINE
     Dosage: BUCCAL
     Route: 002
     Dates: start: 20040713
  2. AVINZA [Concomitant]
  3. VALIUM [Concomitant]
  4. LIDOCAINE [Concomitant]

REACTIONS (2)
  - ACCIDENTAL OVERDOSE [None]
  - DRUG TOXICITY [None]
